FAERS Safety Report 9357268 (Version 2)
Quarter: 2013Q3

REPORT INFORMATION
  Report Type: Spontaneous
  Country: JP (occurrence: JP)
  Receive Date: 20130620
  Receipt Date: 20130705
  Transmission Date: 20140515
  Serious: Yes (Other)
  Sender: FDA-Public Use
  Company Number: JP-SANOFI-AVENTIS-2013SA061292

PATIENT
  Age: 84 Year
  Sex: Male

DRUGS (3)
  1. AMARYL [Suspect]
     Indication: TYPE 2 DIABETES MELLITUS
     Route: 048
     Dates: end: 20130612
  2. ARTIST [Concomitant]
     Route: 048
  3. BEZAFIBRATE [Concomitant]
     Route: 048

REACTIONS (2)
  - Renal impairment [Unknown]
  - Hypoglycaemia [Not Recovered/Not Resolved]
